FAERS Safety Report 9555715 (Version 3)
Quarter: 2013Q4

REPORT INFORMATION
  Report Type: Report from Study
  Country: US (occurrence: US)
  Receive Date: 20130926
  Receipt Date: 20131031
  Transmission Date: 20140711
  Serious: Yes (Death)
  Sender: FDA-Public Use
  Company Number: PHEH2013US020074

PATIENT
  Sex: Male

DRUGS (1)
  1. GLEEVEC [Suspect]
     Indication: GASTROINTESTINAL STROMAL TUMOUR
     Dosage: UNK UKN, DAILY
     Route: 048
     Dates: start: 20130412

REACTIONS (6)
  - Chronic obstructive pulmonary disease [Fatal]
  - Metastases to liver [Fatal]
  - Metastases to lung [Fatal]
  - Metastases to bone [Fatal]
  - Gastrointestinal stromal tumour [Fatal]
  - Malignant neoplasm progression [Fatal]
